FAERS Safety Report 7011791 (Version 2)
Quarter: 2013Q4

REPORT INFORMATION
  Report Type: Spontaneous
  Country: US (occurrence: None)
  Receive Date: 20090526
  Receipt Date: 20131220
  Transmission Date: 20140711
  Serious: Yes (Other)
  Sender: FDA-Public Use
  Company Number: 2009S1004006

PATIENT
  Age: 64 Year
  Sex: Female

DRUGS (3)
  1. SODIUM PHOSPHATE, DIBASIC\SODIUM PHOSPHATE, MONOBASIC, ANHYDROUS [Suspect]
     Indication: COLONOSCOPY
     Dosage: PO 45MLX2
     Route: 048
     Dates: start: 19991103
  2. XALATAN [Concomitant]
  3. PILOPINE HS [Concomitant]

REACTIONS (1)
  - Renal failure chronic [None]
